FAERS Safety Report 25798063 (Version 1)
Quarter: 2025Q3

REPORT INFORMATION
  Report Type: Spontaneous
  Country: IN (occurrence: IN)
  Receive Date: 20250912
  Receipt Date: 20250912
  Transmission Date: 20251020
  Serious: Yes (Hospitalization, Other)
  Sender: EXELA PHARMA SCIENCES
  Company Number: IN-EXELAPHARMA-2025EXLA00184

PATIENT
  Age: 24 Year
  Sex: Male

DRUGS (2)
  1. PHENYLEPHRINE HYDROCHLORIDE [Suspect]
     Active Substance: PHENYLEPHRINE HYDROCHLORIDE
     Indication: Priapism
     Route: 011
  2. TAMSULOSIN [Concomitant]
     Active Substance: TAMSULOSIN

REACTIONS (1)
  - Drug ineffective for unapproved indication [Unknown]
